FAERS Safety Report 7418799-9 (Version None)
Quarter: 2011Q2

REPORT INFORMATION
  Report Type: 
  Country: None (occurrence: None)
  Receive Date: 20110415
  Receipt Date: 20110408
  Transmission Date: 20111010
  Serious: Yes (Death, Other)
  Sender: FDA-Public Use
  Company Number: US-BRISTOL-MYERS SQUIBB COMPANY-15652522

PATIENT
  Sex: Male

DRUGS (1)
  1. WARFARIN SODIUM [Suspect]
     Indication: PERIPHERAL VASCULAR DISORDER
     Dosage: DURATION OF THERAPY:MORE THAN A YEAR FORM:TABS INITIAL DOSE:1MG/D INT AND RESTARTED

REACTIONS (6)
  - MEDICATION ERROR [None]
  - GINGIVAL BLEEDING [None]
  - SUBDURAL HAEMATOMA [None]
  - BLOOD URINE PRESENT [None]
  - OVERDOSE [None]
  - CONTUSION [None]
